FAERS Safety Report 9468555 (Version 1)
Quarter: 2013Q3

REPORT INFORMATION
  Report Type: Spontaneous
  Country: US (occurrence: US)
  Receive Date: 20130821
  Receipt Date: 20130821
  Transmission Date: 20140515
  Serious: Yes (Hospitalization)
  Sender: FDA-Public Use
  Company Number: US-GLAXOSMITHKLINE-A1038427A

PATIENT
  Age: 78 Year
  Sex: Male

DRUGS (9)
  1. LOVAZA [Suspect]
     Indication: PRODUCT USED FOR UNKNOWN INDICATION
  2. ZETIA [Concomitant]
  3. CLOPIDOGREL [Concomitant]
  4. CRESTOR [Concomitant]
  5. HYDROCHLOROTHIAZIDE [Concomitant]
  6. LOSARTAN [Concomitant]
  7. NOVOLOG [Concomitant]
  8. VITAMIN D [Concomitant]
  9. ASPIRIN [Concomitant]

REACTIONS (3)
  - Blood pressure decreased [Unknown]
  - Urinary tract infection [Unknown]
  - Treatment noncompliance [Unknown]
